FAERS Safety Report 21442337 (Version 1)
Quarter: 2022Q4

REPORT INFORMATION
  Report Type: Spontaneous
  Country: US (occurrence: None)
  Receive Date: 20221010
  Receipt Date: 20221010
  Transmission Date: 20230113
  Serious: Yes (Death)
  Sender: FDA-Public Use
  Company Number: None

PATIENT
  Age: 66 Year
  Sex: Female
  Weight: 88.5 kg

DRUGS (1)
  1. DIGOXIN [Suspect]
     Active Substance: DIGOXIN
     Indication: Cardiac failure congestive
     Dosage: FREQUENCY : DAILY;?
     Route: 048
     Dates: start: 20220421, end: 20220712

REACTIONS (12)
  - Asthenia [None]
  - Dyspnoea [None]
  - Presyncope [None]
  - Tremor [None]
  - Cardiorenal syndrome [None]
  - Acute kidney injury [None]
  - Chronic kidney disease [None]
  - Cardiac arrest [None]
  - Shock [None]
  - Condition aggravated [None]
  - Toxicity to various agents [None]
  - Pulseless electrical activity [None]

NARRATIVE: CASE EVENT DATE: 20220712
